FAERS Safety Report 23106383 (Version 4)
Quarter: 2023Q4

REPORT INFORMATION
  Report Type: Spontaneous
  Country: PT (occurrence: PT)
  Receive Date: 20231025
  Receipt Date: 20231215
  Transmission Date: 20240109
  Serious: Yes (Death, Hospitalization, Other)
  Sender: FDA-Public Use
  Company Number: PT-DSJP-DSE-2023-143906

PATIENT
  Age: 49 Year
  Sex: Female
  Weight: 51 kg

DRUGS (4)
  1. TRASTUZUMAB DERUXTECAN [Suspect]
     Active Substance: TRASTUZUMAB DERUXTECAN
     Indication: HER2 positive breast cancer
     Dosage: 5.4 MG/KG, ONCE EVERY 3 WK
     Route: 065
     Dates: start: 20220627
  2. TRASTUZUMAB DERUXTECAN [Suspect]
     Active Substance: TRASTUZUMAB DERUXTECAN
     Indication: Breast cancer metastatic
     Dosage: UNK UNK, ONCE EVERY 3 WK
     Route: 065
     Dates: start: 20220727
  3. TRASTUZUMAB DERUXTECAN [Suspect]
     Active Substance: TRASTUZUMAB DERUXTECAN
     Dosage: UNK UNK, ONCE EVERY 3 WK
     Route: 065
     Dates: start: 20220824
  4. TRASTUZUMAB DERUXTECAN [Suspect]
     Active Substance: TRASTUZUMAB DERUXTECAN
     Dosage: 4.4 MG/KG, ONCE EVERY 3 WK
     Route: 065
     Dates: start: 20230614

REACTIONS (13)
  - Pneumonia [Fatal]
  - Pneumonitis [Fatal]
  - Condition aggravated [Fatal]
  - Increased bronchial secretion [Not Recovered/Not Resolved]
  - Urine odour abnormal [Unknown]
  - Asthenia [Not Recovered/Not Resolved]
  - Decreased appetite [Recovering/Resolving]
  - Pleural effusion [Recovered/Resolved]
  - Aspergillus infection [Unknown]
  - Neutrophilia [Unknown]
  - COVID-19 [Unknown]
  - Oxygen saturation decreased [Not Recovered/Not Resolved]
  - Intentional product use issue [Recovered/Resolved]

NARRATIVE: CASE EVENT DATE: 20220629
